FAERS Safety Report 6385649-1 (Version None)
Quarter: 2009Q4

REPORT INFORMATION
  Report Type: 
  Country: None (occurrence: None)
  Receive Date: 20091002
  Receipt Date: 20081023
  Transmission Date: 20100525
  Serious: No
  Sender: FDA-Public Use
  Company Number: US-ASTRAZENECA-2008UW23583

PATIENT
  Age: 61 Year
  Sex: Female
  Weight: 62.6 kg

DRUGS (5)
  1. ARIMIDEX [Suspect]
     Indication: BREAST CANCER
     Dosage: 1 MG
     Route: 048
     Dates: start: 20070901
  2. ATENOLOL [Concomitant]
  3. LIPITOR [Concomitant]
  4. FOLIC ACID [Concomitant]
  5. ACIPHEX [Concomitant]

REACTIONS (4)
  - ARTHRALGIA [None]
  - BONE PAIN [None]
  - RHEUMATOID FACTOR INCREASED [None]
  - SJOGREN'S SYNDROME [None]
